FAERS Safety Report 26019268 (Version 3)
Quarter: 2025Q4

REPORT INFORMATION
  Report Type: Spontaneous
  Country: US (occurrence: US)
  Receive Date: 20251110
  Receipt Date: 20251210
  Transmission Date: 20260118
  Serious: No
  Sender: Kenvue
  Company Number: US-KENVUE-20251009508

PATIENT
  Sex: Female

DRUGS (1)
  1. WOMENS ROGAINE [Suspect]
     Active Substance: MINOXIDIL
     Indication: Alopecia
     Dosage: UNK UNK, ONCE A DAY (LIQUID TO SCALP ONCE DAILY)
     Route: 065
     Dates: start: 20000101

REACTIONS (2)
  - Alopecia [Unknown]
  - Inappropriate schedule of product administration [Unknown]
